FAERS Safety Report 4622765-6 (Version None)
Quarter: 2005Q1

REPORT INFORMATION
  Report Type: 
  Country: None (occurrence: None)
  Receive Date: 20050330
  Receipt Date: 20050322
  Transmission Date: 20050727
  Serious: Yes (Hospitalization)
  Sender: FDA-Public Use
  Company Number: US-BRISTOL-MYERS SQUIBB COMPANY-12914370

PATIENT
  Age: 55 Year
  Sex: Female

DRUGS (6)
  1. SERZONE [Suspect]
     Indication: PANIC ATTACK
     Dates: start: 20010701, end: 20011023
  2. SERZONE [Suspect]
     Indication: ANXIETY
     Dates: start: 20010701, end: 20011023
  3. SERTRALINE HCL [Concomitant]
  4. SYNTHROID [Concomitant]
  5. ALLEGRA [Concomitant]
  6. PULMICORT [Concomitant]

REACTIONS (9)
  - ANXIETY [None]
  - CHOLESTASIS [None]
  - DUODENITIS [None]
  - GALLBLADDER DISORDER [None]
  - GASTRITIS [None]
  - HAEMORRHOIDS [None]
  - HEPATITIS [None]
  - MENTAL IMPAIRMENT [None]
  - PANCREATITIS [None]
